FAERS Safety Report 9847260 (Version 1)
Quarter: 2014Q1

REPORT INFORMATION
  Report Type: Spontaneous
  Country: US (occurrence: US)
  Receive Date: 20140127
  Receipt Date: 20140127
  Transmission Date: 20141002
  Serious: Yes (Hospitalization)
  Sender: FDA-Public Use
  Company Number: US-PFIZER INC-2014024115

PATIENT
  Age: 64 Year
  Sex: Male

DRUGS (5)
  1. VANCOMYCIN HCL [Suspect]
     Indication: PERITONITIS
     Dosage: UNK
     Route: 033
     Dates: start: 201310
  2. FORTAZ [Suspect]
     Indication: PERITONITIS
     Dosage: UNK
     Route: 033
     Dates: start: 2013
  3. GENTAMICIN SULFATE [Suspect]
     Indication: PERITONITIS
     Dosage: UNK
     Route: 033
     Dates: start: 20131023, end: 20131023
  4. AUGMENTIN [Suspect]
     Indication: PERITONITIS
     Dosage: UNK
     Route: 048
  5. EXTRANEAL [Concomitant]
     Dosage: UNK

REACTIONS (1)
  - Sepsis [Recovered/Resolved]
